FAERS Safety Report 9923553 (Version 1)
Quarter: 2014Q1

REPORT INFORMATION
  Report Type: Spontaneous
  Country: US (occurrence: US)
  Receive Date: 20140225
  Receipt Date: 20140225
  Transmission Date: 20141002
  Serious: No
  Sender: FDA-Public Use
  Company Number: US-AMGEN-USASP2013085514

PATIENT
  Age: 67 Year
  Sex: Female

DRUGS (2)
  1. ENBREL [Suspect]
     Indication: PSORIATIC ARTHROPATHY
     Dosage: 25 MG, QWK
     Route: 065
     Dates: start: 20131119
  2. ENBREL [Suspect]
     Indication: PSORIASIS

REACTIONS (7)
  - Pain in extremity [Not Recovered/Not Resolved]
  - Gait disturbance [Not Recovered/Not Resolved]
  - Hand deformity [Not Recovered/Not Resolved]
  - Finger deformity [Not Recovered/Not Resolved]
  - Foot deformity [Not Recovered/Not Resolved]
  - Arthropathy [Not Recovered/Not Resolved]
  - Psoriasis [Not Recovered/Not Resolved]
